FAERS Safety Report 8237137-5 (Version None)
Quarter: 2012Q1

REPORT INFORMATION
  Report Type: 
  Country: None (occurrence: None)
  Receive Date: 20120327
  Receipt Date: 20120313
  Transmission Date: 20120608
  Serious: Yes (Hospitalization)
  Sender: FDA-Public Use
  Company Number: DE-BAXTER-2012BAX000168

PATIENT
  Age: 69 Year
  Sex: Female

DRUGS (5)
  1. EPOGEN [Concomitant]
     Route: 065
  2. IRON [Concomitant]
     Route: 042
  3. EXTRANEAL [Suspect]
     Route: 033
     Dates: start: 20100531
  4. PHYSIONEAL 40 GLUCOSE 1,36 % W/V 13,6 MG/ML PERITONEALDIALYSELOSUNG [Suspect]
     Route: 033
     Dates: start: 20100531
  5. NUTRINEAL PD4 MIT 1,1% AMINOSAUREN [Suspect]
     Route: 033
     Dates: start: 20100531

REACTIONS (1)
  - ATRIAL FIBRILLATION [None]
